FAERS Safety Report 11286073 (Version 1)
Quarter: 2015Q3

REPORT INFORMATION
  Report Type: Spontaneous
  Country: US (occurrence: None)
  Receive Date: 20150717
  Receipt Date: 20150717
  Transmission Date: 20151125
  Serious: Yes (Hospitalization)
  Sender: FDA-Public Use
  Company Number: None

PATIENT
  Age: 64 Year
  Sex: Male
  Weight: 101.6 kg

DRUGS (2)
  1. SULINDAC. [Suspect]
     Active Substance: SULINDAC
     Indication: ATRIAL FIBRILLATION
     Dates: start: 20140124, end: 20140127
  2. DABIGATRAN [Suspect]
     Active Substance: DABIGATRAN
     Dosage: MG, PO
     Route: 048
     Dates: start: 20130728, end: 20140127

REACTIONS (1)
  - Gastric haemorrhage [None]

NARRATIVE: CASE EVENT DATE: 20140127
